FAERS Safety Report 9307301 (Version 1)
Quarter: 2013Q2

REPORT INFORMATION
  Report Type: Spontaneous
  Country: US (occurrence: US)
  Receive Date: 20130524
  Receipt Date: 20130524
  Transmission Date: 20140414
  Serious: No
  Sender: FDA-Public Use
  Company Number: US-BIOGENIDEC-2013BI045447

PATIENT
  Sex: Female

DRUGS (4)
  1. TRINESSA (28) [Concomitant]
  2. XANAX [Concomitant]
  3. AVONEX [Suspect]
     Indication: PRODUCT USED FOR UNKNOWN INDICATION
     Route: 030
  4. CYMBALTA [Concomitant]

REACTIONS (4)
  - Vertigo [Unknown]
  - Diplopia [Unknown]
  - Lethargy [Unknown]
  - Dizziness [Unknown]
